FAERS Safety Report 8508822-2 (Version None)
Quarter: 2012Q3

REPORT INFORMATION
  Report Type: 
  Country: None (occurrence: None)
  Receive Date: 20120713
  Receipt Date: 20120704
  Transmission Date: 20120928
  Serious: Yes (Other)
  Sender: FDA-Public Use
  Company Number: JP-VERTEX PHARMACEUTICALS INC.-AE-2012-010023

PATIENT
  Age: 65 Year
  Sex: Female

DRUGS (11)
  1. ZADITEN [Concomitant]
     Route: 048
     Dates: start: 20120625, end: 20120701
  2. TELAVIC (TELAPREVIR) [Suspect]
     Indication: HEPATITIS C
     Route: 048
     Dates: start: 20120409
  3. RIBAVIRIN [Concomitant]
     Indication: HEPATITIS C
     Route: 048
     Dates: start: 20120409, end: 20120501
  4. PEGINTERFERON ALFA-2B [Concomitant]
     Route: 058
     Dates: start: 20120417
  5. TELAVIC (TELAPREVIR) [Suspect]
     Route: 048
     Dates: end: 20120603
  6. RIBAVIRIN [Concomitant]
     Route: 048
     Dates: start: 20120502
  7. PEGINTERFERON ALFA-2B [Concomitant]
     Route: 058
  8. ZYRTEC [Concomitant]
     Route: 048
     Dates: start: 20120613, end: 20120619
  9. FEBURIC [Concomitant]
     Route: 048
  10. PEGINTERFERON ALFA-2B [Concomitant]
     Indication: HEPATITIS C
     Route: 058
     Dates: end: 20120411
  11. ASTOMIN [Concomitant]
     Route: 048
     Dates: start: 20120613, end: 20120619

REACTIONS (1)
  - RETINAL HAEMORRHAGE [None]
